FAERS Safety Report 18315063 (Version 7)
Quarter: 2021Q2

REPORT INFORMATION
  Report Type: Spontaneous
  Country: IT (occurrence: IT)
  Receive Date: 20200926
  Receipt Date: 20210418
  Transmission Date: 20210717
  Serious: Yes (Death, Other)
  Sender: FDA-Public Use
  Company Number: IT-CELLTRION INC.-2020IT027843

PATIENT

DRUGS (19)
  1. TRASTUZUMAB (UNKNOWN) [Suspect]
     Active Substance: TRASTUZUMAB
     Indication: DISEASE PROGRESSION
     Dosage: LOADING DOSE OF 4 MILLIGRAM/KILOGRAM, THEN 2 MILLIGRAM/KILOGRAM, FOR SIX CYCLES, SECOND LINE
     Route: 065
  2. LEUPRORELIN ACETATE [Concomitant]
     Active Substance: LEUPROLIDE ACETATE
     Indication: METASTASES TO LYMPH NODES
  3. LEUPRORELIN ACETATE [Concomitant]
     Active Substance: LEUPROLIDE ACETATE
     Indication: METASTASES TO LIVER
  4. CARBOPLATIN. [Suspect]
     Active Substance: CARBOPLATIN
     Indication: METASTASES TO LUNG
     Dosage: SIX CYCLES, SECOND LINE
     Route: 065
  5. PACLITAXEL. [Suspect]
     Active Substance: PACLITAXEL
     Indication: METASTASES TO LUNG
  6. TRASTUZUMAB (UNKNOWN) [Suspect]
     Active Substance: TRASTUZUMAB
     Indication: METASTASES TO LUNG
     Dosage: LOADING DOSE 4 MG/KG, WEEKLY; FREQUENCY 6 CYCLES
     Route: 065
  7. CARBOPLATIN. [Suspect]
     Active Substance: CARBOPLATIN
     Indication: DISEASE PROGRESSION
     Dosage: UNK UNK, QWK
  8. PACLITAXEL. [Suspect]
     Active Substance: PACLITAXEL
     Indication: METASTASES TO LYMPH NODES
  9. LEUPRORELIN ACETATE [Concomitant]
     Active Substance: LEUPROLIDE ACETATE
     Indication: DISEASE PROGRESSION
  10. TRASTUZUMAB (UNKNOWN) [Suspect]
     Active Substance: TRASTUZUMAB
     Indication: SALIVARY GLAND CANCER
     Dosage: 2 MILLIGRAM/KILOGRAM, EVERY WEEK; FREQUENCY 6 CYCLES
     Route: 065
  11. PACLITAXEL. [Suspect]
     Active Substance: PACLITAXEL
     Indication: DISEASE PROGRESSION
  12. CARBOPLATIN. [Suspect]
     Active Substance: CARBOPLATIN
     Indication: METASTASES TO LIVER
     Dosage: FREQUENCY: 6 CYCLES
  13. TRASTUZUMAB (UNKNOWN) [Suspect]
     Active Substance: TRASTUZUMAB
     Indication: METASTASES TO LIVER
  14. CARBOPLATIN. [Suspect]
     Active Substance: CARBOPLATIN
     Indication: SALIVARY GLAND CANCER
     Dosage: AUC2 WEEKLY FOR SIX CYCLES
     Route: 065
  15. CARBOPLATIN. [Suspect]
     Active Substance: CARBOPLATIN
     Indication: METASTASES TO LYMPH NODES
  16. PACLITAXEL. [Suspect]
     Active Substance: PACLITAXEL
     Indication: SALIVARY GLAND CANCER
     Dosage: 80 MILLIGRAM/SQ. METER, QWK/ FREQUENCY 6 CYCLES
     Route: 065
  17. PACLITAXEL. [Suspect]
     Active Substance: PACLITAXEL
     Indication: METASTASES TO LIVER
     Dosage: 80 MILLIGRAM PER SQUARE METRE, SIX CYCLES, SECOND LINE
     Route: 065
  18. TRASTUZUMAB (UNKNOWN) [Suspect]
     Active Substance: TRASTUZUMAB
     Indication: METASTASES TO LYMPH NODES
     Dosage: 6 MILLIGRAM/KILOGRAM, 3?WEEKLY FOR 10 MONTHS
     Route: 065
  19. LEUPRORELIN ACETATE [Concomitant]
     Active Substance: LEUPROLIDE ACETATE
     Indication: SALIVARY GLAND CANCER

REACTIONS (12)
  - Therapy partial responder [Fatal]
  - Off label use [Fatal]
  - Intentional product use issue [Unknown]
  - Asthenia [Fatal]
  - Anaemia [Fatal]
  - Headache [Fatal]
  - Ejection fraction decreased [Fatal]
  - Central nervous system lesion [Fatal]
  - General physical health deterioration [Fatal]
  - Death [Fatal]
  - Cardiac dysfunction [Fatal]
  - Epilepsy [Fatal]

NARRATIVE: CASE EVENT DATE: 201912
